FAERS Safety Report 10234690 (Version 1)
Quarter: 2014Q2

REPORT INFORMATION
  Report Type: Spontaneous
  Country: GB (occurrence: GB)
  Receive Date: 20140613
  Receipt Date: 20140613
  Transmission Date: 20141212
  Serious: Yes (Hospitalization)
  Sender: FDA-Public Use
  Company Number: GB-ROCHE-1413426

PATIENT
  Age: 66 Year
  Sex: Male

DRUGS (1)
  1. CAPECITABINE [Suspect]
     Indication: CHEMOTHERAPY SINGLE AGENT SYSTEMIC
     Route: 048
     Dates: start: 20131209, end: 20140513

REACTIONS (2)
  - Pancreatitis acute [Recovering/Resolving]
  - Abdominal pain upper [Unknown]
